FAERS Safety Report 6860747-4 (Version None)
Quarter: 2010Q3

REPORT INFORMATION
  Report Type: 
  Country: None (occurrence: None)
  Receive Date: 20100720
  Receipt Date: 20100622
  Transmission Date: 20110219
  Serious: No
  Sender: FDA-Public Use
  Company Number: US-NOVEN-10US001336

PATIENT
  Sex: Female
  Weight: 68.027 kg

DRUGS (10)
  1. FENTANYL CITRATE [Suspect]
     Indication: NECK PAIN
     Dosage: 100 UG/HR EVERY OTHER DAY
     Route: 062
     Dates: start: 20100614
  2. FENTANYL CITRATE [Suspect]
     Dosage: 100 UG/HR QOD
     Route: 062
     Dates: start: 20040101
  3. TIZANIDINE HCL [Concomitant]
     Indication: MUSCLE SPASMS
     Dosage: 4 MG, QD
     Route: 065
  4. IBUPROFEN [Concomitant]
     Indication: NECK PAIN
     Dosage: 800 MG, QD
     Route: 065
  5. WELLBUTRIN [Concomitant]
     Indication: SMOKING CESSATION THERAPY
     Dosage: 300 MG, QD
     Route: 065
  6. WELLBUTRIN [Concomitant]
     Indication: DEPRESSION
  7. TRAMADOL [Concomitant]
     Indication: BREAKTHROUGH PAIN
     Dosage: 50 MG, QD
     Route: 065
  8. AMITRIPTYLINE HYDROCHLORIDE [Concomitant]
     Indication: MUSCLE SPASMS
     Dosage: 75 MG, QD
     Route: 065
  9. MAXALT [Concomitant]
     Indication: MIGRAINE
     Dosage: 10 MG, PRN
     Route: 065
  10. ESZOPICLONE [Concomitant]
     Indication: INSOMNIA
     Dosage: 3 MG, PRN

REACTIONS (2)
  - INADEQUATE ANALGESIA [None]
  - PRODUCT QUALITY ISSUE [None]
